FAERS Safety Report 24416434 (Version 4)
Quarter: 2024Q4

REPORT INFORMATION
  Report Type: Spontaneous
  Country: AR (occurrence: AR)
  Receive Date: 20241009
  Receipt Date: 20241202
  Transmission Date: 20250114
  Serious: No
  Sender: PFIZER
  Company Number: AR-PFIZER INC-202400269503

PATIENT
  Age: 6 Year
  Sex: Male

DRUGS (1)
  1. GENOTROPIN [Suspect]
     Active Substance: SOMATROPIN
     Indication: Growth hormone deficiency
     Dosage: 0.6 MG, 6 TIMES A WEEK
     Dates: start: 20231203

REACTIONS (4)
  - Injection site discomfort [Unknown]
  - Device mechanical issue [Unknown]
  - Device delivery system issue [Unknown]
  - Needle issue [Unknown]
